FAERS Safety Report 19820941 (Version 2)
Quarter: 2021Q3

REPORT INFORMATION
  Report Type: Spontaneous
  Country: US (occurrence: US)
  Receive Date: 20210913
  Receipt Date: 20210916
  Transmission Date: 20211014
  Serious: Yes (Hospitalization, Other)
  Sender: FDA-Public Use
  Company Number: US-STRIDES ARCOLAB LIMITED-2021SP027367

PATIENT
  Age: 41 Year
  Sex: Female
  Weight: 161 kg

DRUGS (5)
  1. PIPERACILLIN/TAZOBACTAM [Interacting]
     Active Substance: PIPERACILLIN SODIUM\TAZOBACTAM SODIUM
     Dosage: UNK, DOSE WAS ADJUSTED
     Route: 065
  2. VANCOMYCIN [Suspect]
     Active Substance: VANCOMYCIN
     Indication: PANNICULITIS
     Dosage: 2 GRAM, LOADING DOSE
     Route: 065
  3. VANCOMYCIN [Interacting]
     Active Substance: VANCOMYCIN
     Dosage: 1.75 G EVERY 8 HOURS
     Route: 065
  4. VANCOMYCIN [Interacting]
     Active Substance: VANCOMYCIN
     Dosage: UNK, RECEIVED TWO DOSAGES OF VANCOMYCIN
     Route: 065
  5. PIPERACILLIN/TAZOBACTAM [Interacting]
     Active Substance: PIPERACILLIN SODIUM\TAZOBACTAM SODIUM
     Indication: PANNICULITIS
     Dosage: UNK
     Route: 065

REACTIONS (6)
  - Drug level above therapeutic [Recovered/Resolved]
  - Drug interaction [Unknown]
  - Acute kidney injury [Recovered/Resolved]
  - Drug clearance decreased [Recovered/Resolved]
  - Off label use [Unknown]
  - Nephropathy toxic [Recovered/Resolved]
